FAERS Safety Report 13058811 (Version 1)
Quarter: 2016Q4

REPORT INFORMATION
  Report Type: Spontaneous
  Country: NL (occurrence: NL)
  Receive Date: 20161223
  Receipt Date: 20161223
  Transmission Date: 20170207
  Serious: Yes (Other)
  Sender: FDA-Public Use
  Company Number: NL-009507513-1612NLD009118

PATIENT
  Age: 21 Year
  Sex: Female

DRUGS (1)
  1. IMPLANON [Suspect]
     Active Substance: ETONOGESTREL
     Indication: CONTRACEPTION
     Dosage: UNK
     Route: 059
     Dates: start: 2015, end: 20161125

REACTIONS (3)
  - Menstruation normal [Unknown]
  - Drug ineffective [Unknown]
  - Ovarian cyst ruptured [Unknown]

NARRATIVE: CASE EVENT DATE: 2015
